FAERS Safety Report 14460740 (Version 1)
Quarter: 2018Q1

REPORT INFORMATION
  Report Type: Spontaneous
  Country: US (occurrence: US)
  Receive Date: 20180130
  Receipt Date: 20180130
  Transmission Date: 20180509
  Serious: No
  Sender: FDA-Public Use
  Company Number: US-BAYER-2018-018900

PATIENT
  Sex: Female

DRUGS (1)
  1. MIRALAX [Suspect]
     Active Substance: POLYETHYLENE GLYCOL 3350
     Indication: GASTROINTESTINAL DISORDER
     Dosage: 1 DF, UNK
     Route: 048

REACTIONS (6)
  - Frequent bowel movements [Unknown]
  - Dysphagia [None]
  - Product use issue [Unknown]
  - Incorrect drug administration duration [Unknown]
  - Hypophagia [None]
  - Infrequent bowel movements [None]
